FAERS Safety Report 5515301-3 (Version None)
Quarter: 2007Q4

REPORT INFORMATION
  Report Type: 
  Country: None (occurrence: None)
  Receive Date: 20071113
  Receipt Date: 20071108
  Transmission Date: 20080405
  Serious: Yes (Other)
  Sender: FDA-Public Use
  Company Number: GB-BOEHRINGER INGELHEIM PHARMACEUTICALS, INC.-2007-UK-03530UK

PATIENT
  Sex: Male

DRUGS (10)
  1. PRAMIPEXOLE DIHYDROCHLORIDE [Suspect]
     Indication: RESTLESS LEGS SYNDROME
     Route: 048
     Dates: start: 20070815, end: 20070910
  2. ATORVASTATIN CALCIUM [Concomitant]
  3. BENDROFLUAZIDE [Concomitant]
  4. ENALAPRIL MALEATE [Concomitant]
     Route: 048
  5. LANSOPRAZOLE [Concomitant]
  6. METFORMIN HCL [Concomitant]
     Dosage: 2/1 DAYS
     Route: 048
  7. METFORMIN HCL [Concomitant]
  8. ROSIGLITAZONE [Concomitant]
  9. TOLBUTAMIDE [Concomitant]
     Dosage: 2/1 DAYS
     Route: 048
  10. TOLBUTAMIDE [Concomitant]

REACTIONS (1)
  - HYPOMANIA [None]
